FAERS Safety Report 9317750 (Version 1)
Quarter: 2013Q2

REPORT INFORMATION
  Report Type: Spontaneous
  Country: GB (occurrence: None)
  Receive Date: 20130524
  Receipt Date: 20130524
  Transmission Date: 20140414
  Serious: Yes (Disabling, Other)
  Sender: FDA-Public Use
  Company Number: CL-489-2013

PATIENT
  Age: 43 Year
  Sex: Female
  Weight: 63.5 kg

DRUGS (5)
  1. METRONIDAZOLE [Suspect]
     Dates: start: 20130429, end: 2013
  2. ESTRADIOL [Concomitant]
  3. HYDROCORTISONE [Concomitant]
  4. LEVOTHYROXINE [Concomitant]
  5. HYDROXOCOBALAMIN [Concomitant]

REACTIONS (3)
  - Acute psychosis [None]
  - Feeling abnormal [None]
  - Psychotic disorder [None]
